FAERS Safety Report 9161136 (Version 3)
Quarter: 2013Q2

REPORT INFORMATION
  Report Type: Spontaneous
  Country: US (occurrence: US)
  Receive Date: 20130313
  Receipt Date: 20130620
  Transmission Date: 20140414
  Serious: Yes (Death, Hospitalization)
  Sender: FDA-Public Use
  Company Number: US-GLAXOSMITHKLINE-A1015660A

PATIENT
  Age: 74 Year
  Sex: Male
  Weight: 77.3 kg

DRUGS (1)
  1. ARZERRA [Suspect]
     Indication: CHRONIC LYMPHOCYTIC LEUKAEMIA
     Dosage: 1000MG MONTHLY
     Route: 042
     Dates: start: 20120731, end: 20121210

REACTIONS (3)
  - Chronic lymphocytic leukaemia [Fatal]
  - Dehydration [Unknown]
  - Hyperkalaemia [Unknown]
